FAERS Safety Report 9613790 (Version 2)
Quarter: 2015Q2

REPORT INFORMATION
  Report Type: Spontaneous
  Country: IT (occurrence: IT)
  Receive Date: 20131010
  Receipt Date: 20150520
  Transmission Date: 20150821
  Serious: Yes (Hospitalization)
  Sender: FDA-Public Use
  Company Number: PHHY2013IT111497

PATIENT
  Age: 42 Year
  Sex: Female

DRUGS (3)
  1. ETHINYLESTRADIOL+GESTODENE [Interacting]
     Active Substance: ETHINYL ESTRADIOL\GESTODENE
     Indication: ORAL CONTRACEPTION
     Route: 065
  2. IRBESARTAN. [Suspect]
     Active Substance: IRBESARTAN
     Indication: HYPERTENSION
     Dosage: 150 MG, QD
     Route: 065
  3. CAMELLIA SINENSIS [Interacting]
     Active Substance: GREEN TEA LEAF
     Indication: PRODUCT USED FOR UNKNOWN INDICATION
     Dosage: 1 G, QD
     Route: 065

REACTIONS (6)
  - Autoimmune hepatitis [Recovered/Resolved]
  - Toxicity to various agents [Unknown]
  - Jaundice [Recovering/Resolving]
  - Drug interaction [Unknown]
  - Hepatic failure [Unknown]
  - Hepatic necrosis [Unknown]
